FAERS Safety Report 4517672-3 (Version None)
Quarter: 2004Q4

REPORT INFORMATION
  Report Type: 
  Country: None (occurrence: None)
  Receive Date: 20041202
  Receipt Date: 20041202
  Transmission Date: 20050328
  Serious: Yes (Death)
  Sender: FDA-Public Use
  Company Number: None

PATIENT
  Age: 51 Year
  Sex: Female
  Weight: 125.1928 kg

DRUGS (7)
  1. CLOZAPINE [Suspect]
     Indication: SCHIZOAFFECTIVE DISORDER
     Dosage: 100 MG AM, 200 MG HS PO
     Route: 048
     Dates: start: 20040908, end: 20040926
  2. HYDROCHLOROTHIAZIDE [Concomitant]
  3. LISINOPRIL [Concomitant]
  4. METFORMIN HCL [Concomitant]
  5. AMARYL [Concomitant]
  6. Z-PAK [Concomitant]
  7. CLOZAPINE [Concomitant]

REACTIONS (6)
  - BODY TEMPERATURE INCREASED [None]
  - COMA [None]
  - COUGH [None]
  - DIABETES MELLITUS INADEQUATE CONTROL [None]
  - RESPIRATORY TRACT CONGESTION [None]
  - WHEEZING [None]
